FAERS Safety Report 7968533-9 (Version None)
Quarter: 2011Q4

REPORT INFORMATION
  Report Type: 
  Country: None (occurrence: None)
  Receive Date: 20111207
  Receipt Date: 20111125
  Transmission Date: 20120403
  Serious: Yes (Other)
  Sender: FDA-Public Use
  Company Number: JP-006954

PATIENT
  Age: 50 Year
  Sex: Male

DRUGS (2)
  1. VASOPRESSIN [Concomitant]
  2. DESMOPRESSIN ACETATE [Suspect]
     Indication: DIABETES INSIPIDUS
     Dosage: (NASAL) (NASAL)
     Route: 045

REACTIONS (1)
  - PANCYTOPENIA [None]
